FAERS Safety Report 21642923 (Version 1)
Quarter: 2022Q4

REPORT INFORMATION
  Report Type: Spontaneous
  Country: JP (occurrence: JP)
  Receive Date: 20221125
  Receipt Date: 20221125
  Transmission Date: 20230113
  Serious: Yes (Hospitalization)
  Sender: FDA-Public Use
  Company Number: JP-JNJFOC-20220654360

PATIENT
  Age: 5 Decade
  Sex: Male

DRUGS (12)
  1. IMBRUVICA [Interacting]
     Active Substance: IBRUTINIB
     Indication: Chronic graft versus host disease
     Dosage: IBRUTINIB:140MG
     Route: 048
     Dates: start: 20220207, end: 2022
  2. IMBRUVICA [Interacting]
     Active Substance: IBRUTINIB
     Indication: Chronic graft versus host disease
     Dosage: IBRUTINIB:140MG
     Route: 048
     Dates: start: 2022
  3. FLUCONAZOLE [Interacting]
     Active Substance: FLUCONAZOLE
     Indication: Infection prophylaxis
     Dosage: DOSE UNKNOWN
     Route: 065
  4. FLUCONAZOLE [Interacting]
     Active Substance: FLUCONAZOLE
     Indication: Infection prophylaxis
     Dosage: DOSE UNKNOWN
     Route: 065
  5. PREDNISOLONE [Suspect]
     Active Substance: PREDNISOLONE
     Indication: Product used for unknown indication
     Route: 065
  6. PREDNISOLONE [Suspect]
     Active Substance: PREDNISOLONE
     Indication: Product used for unknown indication
     Route: 065
     Dates: end: 2021
  7. PREDNISOLONE [Suspect]
     Active Substance: PREDNISOLONE
     Indication: Product used for unknown indication
     Route: 065
     Dates: start: 2021, end: 2021
  8. PREDNISOLONE [Suspect]
     Active Substance: PREDNISOLONE
     Indication: Product used for unknown indication
     Route: 065
     Dates: start: 2021, end: 202204
  9. PREDNISOLONE [Suspect]
     Active Substance: PREDNISOLONE
     Indication: Product used for unknown indication
     Route: 065
     Dates: start: 202204, end: 202208
  10. PREDNISOLONE [Suspect]
     Active Substance: PREDNISOLONE
     Indication: Product used for unknown indication
     Route: 065
     Dates: start: 202208
  11. ACYCLOVIR [Concomitant]
     Active Substance: ACYCLOVIR
     Indication: Infection prophylaxis
     Dosage: DOSE UNKNOWN
     Route: 065
  12. ACYCLOVIR [Concomitant]
     Active Substance: ACYCLOVIR
     Indication: Infection prophylaxis
     Route: 065

REACTIONS (6)
  - Pneumonia pneumococcal [Recovered/Resolved]
  - Pneumonia bacterial [Recovered/Resolved]
  - Drug interaction [Not Recovered/Not Resolved]
  - Epistaxis [Not Recovered/Not Resolved]
  - Myalgia [Unknown]
  - Arthralgia [Unknown]

NARRATIVE: CASE EVENT DATE: 20220101
